FAERS Safety Report 11622433 (Version 1)
Quarter: 2015Q4

REPORT INFORMATION
  Report Type: Spontaneous
  Country: US (occurrence: None)
  Receive Date: 20151009
  Receipt Date: 20151009
  Transmission Date: 20160304
  Serious: Yes (Other)
  Sender: FDA-Public Use
  Company Number: None

PATIENT
  Age: 23 Year
  Sex: Female
  Weight: 90.27 kg

DRUGS (4)
  1. PLAQUENIL [Suspect]
     Active Substance: HYDROXYCHLOROQUINE SULFATE
     Indication: SYSTEMIC LUPUS ERYTHEMATOSUS
     Dosage: 1 PILL
     Route: 048
     Dates: start: 20150819, end: 20150902
  2. PLAQUENIL [Suspect]
     Active Substance: HYDROXYCHLOROQUINE SULFATE
     Indication: RHEUMATOID ARTHRITIS
     Dosage: 1 PILL
     Route: 048
     Dates: start: 20150819, end: 20150902
  3. VITAMIN D [Concomitant]
     Active Substance: CHOLECALCIFEROL
  4. ONCE A DAY WOMEN^S VITAMIN [Concomitant]

REACTIONS (4)
  - Condition aggravated [None]
  - Rheumatoid arthritis [None]
  - Disorientation [None]
  - Vision blurred [None]

NARRATIVE: CASE EVENT DATE: 20150902
